FAERS Safety Report 4931720-8 (Version None)
Quarter: 2006Q1

REPORT INFORMATION
  Report Type: 
  Country: None (occurrence: None)
  Receive Date: 20060303
  Receipt Date: 20060105
  Transmission Date: 20060701
  Serious: Yes (Disabling, Other)
  Sender: FDA-Public Use
  Company Number: 2006SE00104

PATIENT
  Age: 29215 Day
  Sex: Female
  Weight: 63 kg

DRUGS (5)
  1. BLOPRESS TABLETS 2 [Suspect]
     Indication: HYPERTENSION
     Route: 048
     Dates: start: 20051118, end: 20051211
  2. ALTAT [Concomitant]
     Indication: REFLUX OESOPHAGITIS
     Route: 048
     Dates: start: 20030731
  3. ADALAT [Concomitant]
     Indication: HYPERTENSION
     Route: 048
     Dates: start: 20010109
  4. SINGULAIR [Concomitant]
     Indication: ASTHMA
     Route: 048
     Dates: start: 20020620
  5. PULMICORT 200 TURBUHALER [Concomitant]
     Indication: ASTHMA
     Route: 055
     Dates: start: 20020214

REACTIONS (3)
  - MYALGIA [None]
  - PAIN IN EXTREMITY [None]
  - SOMNOLENCE [None]
